FAERS Safety Report 4817360-X (Version None)
Quarter: 2005Q4

REPORT INFORMATION
  Report Type: 
  Country: None (occurrence: None)
  Receive Date: 20051101
  Receipt Date: 20051011
  Transmission Date: 20060501
  Serious: Yes (Hospitalization)
  Sender: FDA-Public Use
  Company Number: JP-GILEAD-2005-0008810

PATIENT
  Sex: Male

DRUGS (4)
  1. VIREAD [Suspect]
     Indication: HIV INFECTION
     Route: 048
     Dates: start: 20040816
  2. EPIVIR [Suspect]
     Indication: HIV INFECTION
     Route: 048
     Dates: start: 20040816
  3. STOCRIN [Suspect]
     Indication: HIV INFECTION
     Route: 048
     Dates: start: 20040816
  4. ZITHROMAX [Concomitant]
     Indication: ANTIFUNGAL PROPHYLAXIS
     Dates: start: 20040805, end: 20041008

REACTIONS (2)
  - LUNG INFECTION [None]
  - MYCOBACTERIUM AVIUM COMPLEX INFECTION [None]
